FAERS Safety Report 23678821 (Version 1)
Quarter: 2024Q1

REPORT INFORMATION
  Report Type: Spontaneous
  Country: US (occurrence: US)
  Receive Date: 20240327
  Receipt Date: 20240327
  Transmission Date: 20240410
  Serious: No
  Sender: FDA-Public Use
  Company Number: US-TEVA-VS-3158336

PATIENT
  Age: 5 Year
  Sex: Male

DRUGS (1)
  1. CIMETIDINE [Suspect]
     Active Substance: CIMETIDINE
     Indication: Skin papilloma
     Route: 065

REACTIONS (3)
  - Product prescribing issue [Unknown]
  - Product prescribing issue [Unknown]
  - Dysphagia [Unknown]
